FAERS Safety Report 5286590-8 (Version None)
Quarter: 2007Q2

REPORT INFORMATION
  Report Type: 
  Country: None (occurrence: None)
  Receive Date: 20070404
  Receipt Date: 20070328
  Transmission Date: 20071010
  Serious: Yes (Hospitalization)
  Sender: FDA-Public Use
  Company Number: US-GLAXOSMITHKLINE-A0625654C

PATIENT
  Age: 64 Year
  Sex: Male
  Weight: 73.6 kg

DRUGS (6)
  1. TOPOTECAN HYDROCHLORIDE [Suspect]
     Indication: COLON CANCER METASTATIC
     Dosage: 1MGM2 CYCLIC
     Route: 042
     Dates: start: 20061009, end: 20070105
  2. ERLOTINIB [Suspect]
     Indication: COLON CANCER METASTATIC
     Dosage: 150MG PER DAY
     Route: 048
     Dates: start: 20061009, end: 20070112
  3. PAXIL [Concomitant]
  4. PERCOCET [Concomitant]
  5. PHENERGAN HCL [Concomitant]
  6. ARANESP [Concomitant]

REACTIONS (4)
  - DEHYDRATION [None]
  - DYSPNOEA [None]
  - FEELING HOT AND COLD [None]
  - SINUS TACHYCARDIA [None]
